FAERS Safety Report 21256026 (Version 5)
Quarter: 2023Q2

REPORT INFORMATION
  Report Type: Spontaneous
  Country: US (occurrence: US)
  Receive Date: 20220825
  Receipt Date: 20230428
  Transmission Date: 20230722
  Serious: Yes (Hospitalization, Other)
  Sender: FDA-Public Use
  Company Number: US-BEH-2022148961

PATIENT
  Age: 17 Month
  Sex: Male

DRUGS (24)
  1. IDELVION [Suspect]
     Active Substance: COAGULATION FACTOR IX RECOMBINANT HUMAN
     Indication: Factor IX deficiency
     Dosage: 625-828 UNITS SLOW IV PUSH
     Route: 042
     Dates: start: 20220404
  2. IDELVION [Suspect]
     Active Substance: COAGULATION FACTOR IX RECOMBINANT HUMAN
     Indication: Factor IX deficiency
     Dosage: 625-828 UNITS SLOW IV PUSH
     Route: 042
     Dates: start: 20220404
  3. IDELVION [Suspect]
     Active Substance: COAGULATION FACTOR IX RECOMBINANT HUMAN
     Dosage: 1250-1500 UNITS SLOW IV PUSH
     Route: 042
     Dates: start: 20220404
  4. IDELVION [Suspect]
     Active Substance: COAGULATION FACTOR IX RECOMBINANT HUMAN
     Dosage: 1250-1500 UNITS SLOW IV PUSH
     Route: 042
     Dates: start: 20220404
  5. IDELVION [Suspect]
     Active Substance: COAGULATION FACTOR IX RECOMBINANT HUMAN
     Dosage: 1 DOSAGE FORM
     Route: 065
  6. IDELVION [Suspect]
     Active Substance: COAGULATION FACTOR IX RECOMBINANT HUMAN
     Dosage: 1 DOSAGE FORM
     Route: 065
  7. IDELVION [Suspect]
     Active Substance: COAGULATION FACTOR IX RECOMBINANT HUMAN
     Dosage: 1 DOSAGE FORM
     Route: 065
     Dates: start: 20220825
  8. IDELVION [Suspect]
     Active Substance: COAGULATION FACTOR IX RECOMBINANT HUMAN
     Dosage: 1 DOSAGE FORM
     Route: 065
     Dates: start: 20220825
  9. IDELVION [Suspect]
     Active Substance: COAGULATION FACTOR IX RECOMBINANT HUMAN
     Dosage: 625-828 UNITS SLOW IV PUSH, FOR MINOR BLEED
     Route: 042
     Dates: start: 20220812
  10. IDELVION [Suspect]
     Active Substance: COAGULATION FACTOR IX RECOMBINANT HUMAN
     Dosage: 625-828 UNITS SLOW IV PUSH, FOR MINOR BLEED
     Route: 042
     Dates: start: 20220812
  11. IDELVION [Suspect]
     Active Substance: COAGULATION FACTOR IX RECOMBINANT HUMAN
     Dosage: 1250-1500 UNITS SLOW IV PUSH, FOR MINOR BLEED
     Route: 042
     Dates: start: 20220812
  12. IDELVION [Suspect]
     Active Substance: COAGULATION FACTOR IX RECOMBINANT HUMAN
     Dosage: 1250-1500 UNITS SLOW IV PUSH, FOR MINOR BLEED
     Route: 042
     Dates: start: 20220812
  13. IDELVION [Suspect]
     Active Substance: COAGULATION FACTOR IX RECOMBINANT HUMAN
     Dosage: 2 DOSAGE FORM
     Route: 065
  14. IDELVION [Suspect]
     Active Substance: COAGULATION FACTOR IX RECOMBINANT HUMAN
     Dosage: 2 DOSAGE FORM
     Route: 065
  15. IDELVION [Suspect]
     Active Substance: COAGULATION FACTOR IX RECOMBINANT HUMAN
     Dosage: 4 DOSAGE FORM
     Route: 065
  16. IDELVION [Suspect]
     Active Substance: COAGULATION FACTOR IX RECOMBINANT HUMAN
     Dosage: 4 DOSAGE FORM
     Route: 065
  17. IDELVION [Suspect]
     Active Substance: COAGULATION FACTOR IX RECOMBINANT HUMAN
     Dosage: 267 UNIT, PRN, 700 - 840 UNITS FOR MINOR BLEEDS
     Route: 042
     Dates: start: 202204
  18. IDELVION [Suspect]
     Active Substance: COAGULATION FACTOR IX RECOMBINANT HUMAN
     Dosage: 267 UNIT, PRN, 700 - 840 UNITS FOR MINOR BLEEDS
     Route: 042
     Dates: start: 202204
  19. IDELVION [Suspect]
     Active Substance: COAGULATION FACTOR IX RECOMBINANT HUMAN
     Dosage: 534 UNIT, PRN, 700 - 840 UNITS FOR MINOR BLEEDS
     Route: 042
     Dates: start: 202204
  20. IDELVION [Suspect]
     Active Substance: COAGULATION FACTOR IX RECOMBINANT HUMAN
     Dosage: 534 UNIT, PRN, 700 - 840 UNITS FOR MINOR BLEEDS
     Route: 042
     Dates: start: 202204
  21. IDELVION [Suspect]
     Active Substance: COAGULATION FACTOR IX RECOMBINANT HUMAN
     Dosage: 1093 UNIT, PRN, 1400 -1680 FOR MAJOR BLEEDS
     Route: 042
     Dates: start: 202204
  22. IDELVION [Suspect]
     Active Substance: COAGULATION FACTOR IX RECOMBINANT HUMAN
     Dosage: 1093 UNIT, PRN, 1400 -1680 FOR MAJOR BLEEDS
     Route: 042
     Dates: start: 202204
  23. IDELVION [Suspect]
     Active Substance: COAGULATION FACTOR IX RECOMBINANT HUMAN
     Dosage: 3 DOSAGE FORM
     Route: 042
     Dates: start: 20230408
  24. IDELVION [Suspect]
     Active Substance: COAGULATION FACTOR IX RECOMBINANT HUMAN
     Dosage: 3 DOSAGE FORM
     Route: 042
     Dates: start: 20230408

REACTIONS (7)
  - Traumatic haemorrhage [Unknown]
  - Head injury [Unknown]
  - Traumatic haemorrhage [Unknown]
  - Head injury [Unknown]
  - Haemorrhage [Unknown]
  - Haemorrhage [Unknown]
  - Haemorrhage [Recovered/Resolved]

NARRATIVE: CASE EVENT DATE: 20220805
